FAERS Safety Report 6554919-6 (Version None)
Quarter: 2010Q1

REPORT INFORMATION
  Report Type: 
  Country: None (occurrence: None)
  Receive Date: 20100126
  Receipt Date: 20100111
  Transmission Date: 20100710
  Serious: Yes (Hospitalization)
  Sender: FDA-Public Use
  Company Number: 8053314

PATIENT
  Sex: Female
  Weight: 60 kg

DRUGS (2)
  1. KEPPRA [Suspect]
     Indication: CONVULSION
     Dosage: (500 MG TID ORAL)
     Route: 048
     Dates: start: 20090425, end: 20090502
  2. ASPIRIN [Concomitant]

REACTIONS (1)
  - PSYCHOTIC DISORDER [None]
